FAERS Safety Report 18155274 (Version 1)
Quarter: 2020Q3

REPORT INFORMATION
  Report Type: Spontaneous
  Country: US (occurrence: US)
  Receive Date: 20200814
  Receipt Date: 20200814
  Transmission Date: 20201103
  Serious: No
  Sender: FDA-Public Use
  Company Number: None

PATIENT
  Age: 55 Year
  Sex: Female
  Weight: 74.8 kg

DRUGS (12)
  1. ENOXAPARIN [Concomitant]
     Active Substance: ENOXAPARIN
     Dates: start: 20200805, end: 20200810
  2. CHOLECALCIFEROL [Concomitant]
     Active Substance: CHOLECALCIFEROL
     Dates: start: 20200805, end: 20200810
  3. AZITHROMYCIN ANHYDROUS. [Concomitant]
     Active Substance: AZITHROMYCIN ANHYDROUS
     Dates: start: 20200805, end: 20200809
  4. ACETAMINOPHEN 650 MG PO PRN Q4H [Concomitant]
     Dates: start: 20200805, end: 20200807
  5. CEFTRIAXONE. [Concomitant]
     Active Substance: CEFTRIAXONE
     Dates: start: 20200805, end: 20200809
  6. REMDESIVIR. [Suspect]
     Active Substance: REMDESIVIR
     Indication: COVID-19 PNEUMONIA
     Route: 042
     Dates: start: 20200805, end: 20200807
  7. ATORVASTATIN [Concomitant]
     Active Substance: ATORVASTATIN
     Dates: start: 20200805, end: 20200809
  8. FAMOTIDINE. [Concomitant]
     Active Substance: FAMOTIDINE
     Dates: start: 20200805, end: 20200810
  9. ZINC SULFATE. [Concomitant]
     Active Substance: ZINC SULFATE
     Dates: start: 20200805, end: 20200809
  10. ASCORBIC ACID. [Concomitant]
     Active Substance: ASCORBIC ACID
     Dates: start: 20200805, end: 20200810
  11. ASPIRIN. [Concomitant]
     Active Substance: ASPIRIN
     Dates: start: 20200805, end: 20200810
  12. PREDNISONE. [Concomitant]
     Active Substance: PREDNISONE
     Dates: start: 20200805, end: 20200810

REACTIONS (2)
  - Alanine aminotransferase increased [None]
  - Transaminases increased [None]

NARRATIVE: CASE EVENT DATE: 20200807
